FAERS Safety Report 15955352 (Version 1)
Quarter: 2019Q1

REPORT INFORMATION
  Report Type: Other
  Country: FR (occurrence: FR)
  Receive Date: 20190213
  Receipt Date: 20190213
  Transmission Date: 20190417
  Serious: Yes (Other)
  Sender: FDA-Public Use
  Company Number: FR-DENTSPLY-2019SCDP000085

PATIENT
  Age: 64 Year
  Sex: Female

DRUGS (1)
  1. XYLOCAINE WITH ADRENALINE (EPINEPHRINE) [Suspect]
     Active Substance: EPINEPHRINE BITARTRATE\LIDOCAINE HYDROCHLORIDE
     Indication: LOCAL ANAESTHESIA
     Dosage: UNSPECIFIED
     Dates: start: 20161017, end: 20161017

REACTIONS (3)
  - Laryngeal oedema [Recovered/Resolved]
  - Larynx irritation [Recovered/Resolved]
  - Lacrimation increased [Recovered/Resolved]

NARRATIVE: CASE EVENT DATE: 20161017
